FAERS Safety Report 9695518 (Version 2)
Quarter: 2014Q1

REPORT INFORMATION
  Report Type: Spontaneous
  Country: US (occurrence: US)
  Receive Date: 20131119
  Receipt Date: 20140320
  Transmission Date: 20141002
  Serious: Yes (Other)
  Sender: FDA-Public Use
  Company Number: US-PFIZER INC-2013329969

PATIENT
  Age: 65 Year
  Sex: Female

DRUGS (6)
  1. XELJANZ [Suspect]
     Indication: RHEUMATOID ARTHRITIS
     Dosage: 5 MG, 2X/DAY (1 TABLET 2 TIMES DAILY ORAL)
     Route: 048
     Dates: start: 20130520
  2. ALEVE [Concomitant]
     Dosage: 220 MG, AS NEEDED; PRN (1 CAPSULE AS NEEDED ORAL FOR 3 DAYS)
     Route: 048
  3. CALCIUM [Concomitant]
     Dosage: 1200 MG, DAILY (1200-1000 MG-UNIT ORAL TABLET CHEWABLE)
     Route: 048
  4. FISH OIL [Concomitant]
     Dosage: 1000 MG, DAILY (1 CAPSULE DAILY ORAL; UNSURE OF DOSE)
     Route: 048
  5. LOVASTATIN [Concomitant]
     Dosage: 80 MG, DAILY
     Route: 048
  6. VITAMIN D3 [Concomitant]
     Dosage: 1000 IU, DAILY (1 CAPSULE DAIYL)
     Route: 048

REACTIONS (2)
  - Nephrolithiasis [Recovered/Resolved]
  - Malaise [Unknown]
